FAERS Safety Report 6909030-9 (Version None)
Quarter: 2010Q3

REPORT INFORMATION
  Report Type: 
  Country: None (occurrence: None)
  Receive Date: 20100708
  Receipt Date: 20091102
  Transmission Date: 20110219
  Serious: Yes (Other)
  Sender: FDA-Public Use
  Company Number: 2007086271

PATIENT
  Age: 47 Year
  Sex: Female
  Weight: 56.7 kg

DRUGS (4)
  1. CHANTIX [Suspect]
     Indication: SMOKING CESSATION THERAPY
     Dosage: 0.5 MG, 1X/DAY 0.5 MG, 2X/DAY
     Dates: start: 20071001, end: 20071001
  2. CHANTIX [Suspect]
     Indication: SMOKING CESSATION THERAPY
     Dosage: 0.5 MG, 1X/DAY 0.5 MG, 2X/DAY
     Dates: start: 20071001, end: 20071001
  3. EFEXOR XR (VENLAFAXINE) [Concomitant]
  4. CYANOCOBALAMIN [Concomitant]

REACTIONS (3)
  - GRAND MAL CONVULSION [None]
  - INSOMNIA [None]
  - NAUSEA [None]
